FAERS Safety Report 5085220-8 (Version None)
Quarter: 2006Q3

REPORT INFORMATION
  Report Type: 
  Country: None (occurrence: None)
  Receive Date: 20060816
  Receipt Date: 20060804
  Transmission Date: 20061208
  Serious: Yes (Other)
  Sender: FDA-Public Use
  Company Number: 2006RR-03225

PATIENT
  Age: 49 Year
  Sex: Male

DRUGS (1)
  1. RANITIDINE [Suspect]
     Dosage: 150 MG, BID; 50 MG, TID, INTRAVENOUS

REACTIONS (3)
  - ANGIONEUROTIC OEDEMA [None]
  - DERMATITIS ALLERGIC [None]
  - PRURITUS [None]
